FAERS Safety Report 5023386-6 (Version None)
Quarter: 2006Q2

REPORT INFORMATION
  Report Type: 
  Country: None (occurrence: None)
  Receive Date: 20060606
  Receipt Date: 20060524
  Transmission Date: 20061013
  Serious: Yes (Hospitalization, Other)
  Sender: FDA-Public Use
  Company Number: USA-2006-0024302

PATIENT
  Age: 7 Year
  Sex: Female
  Weight: 44 kg

DRUGS (6)
  1. MORPHINE SULFATE [Suspect]
     Indication: ANAESTHESIA
     Dosage: 2.5 MG, SINGLE
  2. MIDAZOLAM HCL [Concomitant]
  3. SEVOFLURANE [Concomitant]
  4. NITROUS OXIDE W/ OXYGEN [Concomitant]
  5. REMIFENTANIL (REMIFENTANIL) [Concomitant]
  6. KETAMINE (KETAMINE) [Concomitant]

REACTIONS (4)
  - ANAESTHETIC COMPLICATION [None]
  - MOTOR DYSFUNCTION [None]
  - MUSCLE CONTRACTIONS INVOLUNTARY [None]
  - PROCEDURAL COMPLICATION [None]
